FAERS Safety Report 9154075 (Version 1)
Quarter: 2013Q1

REPORT INFORMATION
  Report Type: Spontaneous
  Country: NO (occurrence: NO)
  Receive Date: 20130311
  Receipt Date: 20130311
  Transmission Date: 20140127
  Serious: Yes (Death)
  Sender: FDA-Public Use
  Company Number: NO-PFIZER INC-2013080651

PATIENT
  Age: 90 Year
  Sex: Female

DRUGS (11)
  1. CORDARONE [Suspect]
     Indication: ATRIAL FIBRILLATION
     Dosage: 100 MG, DAILY
     Route: 048
     Dates: start: 2010, end: 20130214
  2. METOPROLOL [Concomitant]
     Dosage: UNK
  3. CENTYL MED KALIUMKLORID [Concomitant]
     Dosage: UNK
  4. ESOPRAL [Concomitant]
     Dosage: UNK
  5. TRIOBE [Concomitant]
     Dosage: UNK
  6. AMLODIPINE [Concomitant]
     Dosage: UNK
  7. METFORMIN [Concomitant]
     Dosage: UNK
  8. RAMIPRIL [Concomitant]
     Dosage: UNK
  9. FURIX [Concomitant]
     Dosage: UNK
  10. SIMVASTATIN [Concomitant]
     Dosage: UNK
     Dates: start: 20130206
  11. FRAGMIN [Concomitant]
     Dosage: UNK
     Dates: start: 20130206

REACTIONS (3)
  - Hypothyroidism [Fatal]
  - Rash [Fatal]
  - Hepatic failure [Fatal]
